FAERS Safety Report 7334407-X (Version None)
Quarter: 2011Q1

REPORT INFORMATION
  Report Type: 
  Country: None (occurrence: None)
  Receive Date: 20110307
  Receipt Date: 20110301
  Transmission Date: 20110831
  Serious: Yes (Life-Threatening, Hospitalization)
  Sender: FDA-Public Use
  Company Number: JP-SANOFI-AVENTIS-2011SA010281

PATIENT
  Age: 58 Year
  Sex: Female
  Weight: 74 kg

DRUGS (22)
  1. HUMALOG [Concomitant]
     Indication: TYPE 2 DIABETES MELLITUS
     Dosage: SLIDING SCALE
     Route: 058
  2. SEROTONE [Concomitant]
     Indication: PREMEDICATION
     Route: 041
     Dates: start: 20100708
  3. MECOBALAMIN [Concomitant]
     Route: 048
  4. DECADRON [Concomitant]
     Indication: PREMEDICATION
     Route: 041
     Dates: start: 20100708
  5. TAXOTERE [Suspect]
     Indication: BREAST CANCER
     Route: 041
     Dates: start: 20100708, end: 20100708
  6. ALL OTHER THERAPEUTIC PRODUCTS [Concomitant]
     Indication: PREMEDICATION
     Route: 048
     Dates: start: 20100708
  7. MUCOSTA [Concomitant]
     Indication: GASTRITIS PROPHYLAXIS
     Route: 048
     Dates: start: 20101202
  8. MAGNESIUM OXIDE [Concomitant]
     Indication: CONSTIPATION
     Route: 048
     Dates: start: 20101224
  9. PAXIL [Concomitant]
     Route: 048
  10. DECADRON [Concomitant]
     Route: 048
     Dates: start: 20100805
  11. EMEND [Concomitant]
     Dosage: 125 MG/DAY ON THE DAY OF CHEMOTHERAPY80 MG/DAY FROM THE NEXT DAY FOR 3 DAYS
     Route: 048
     Dates: start: 20110113
  12. EMEND [Concomitant]
     Indication: VOMITING
     Dosage: 125 MG/DAY ON THE DAY OF CHEMOTHERAPY80 MG/DAY FROM THE NEXT DAY FOR 3 DAYS
     Route: 048
     Dates: start: 20110113
  13. METFORMIN HCL [Concomitant]
     Indication: TYPE 2 DIABETES MELLITUS
     Route: 048
  14. HERBAL EXTRACTS [Concomitant]
     Indication: RHEUMATOID ARTHRITIS
     Route: 048
  15. ZOMETA [Concomitant]
     Indication: METASTASES TO BONE
     Route: 041
     Dates: start: 20100702
  16. CRESTOR [Concomitant]
     Indication: HYPERLIPIDAEMIA
     Route: 048
  17. SILECE [Concomitant]
     Route: 048
  18. TAXOTERE [Suspect]
     Route: 041
     Dates: start: 20110113, end: 20110113
  19. LOXONIN [Concomitant]
     Indication: CANCER PAIN
     Route: 048
     Dates: start: 20101202
  20. KETOPROFEN [Concomitant]
     Indication: CANCER PAIN
     Route: 062
     Dates: start: 20101202
  21. FENTANYL [Concomitant]
     Indication: CANCER PAIN
     Dosage: 4.2 MG/3 DAYS
     Route: 062
     Dates: start: 20110114
  22. PURSENNID /SCH/ [Concomitant]
     Indication: CONSTIPATION
     Route: 048
     Dates: start: 20101224

REACTIONS (8)
  - OEDEMA [None]
  - CHOLECYSTITIS ACUTE [None]
  - FATIGUE [None]
  - VOMITING [None]
  - NAIL DISORDER [None]
  - PERITONITIS [None]
  - DECREASED APPETITE [None]
  - DIARRHOEA [None]
